FAERS Safety Report 7155809-0 (Version None)
Quarter: 2010Q4

REPORT INFORMATION
  Report Type: 
  Country: None (occurrence: None)
  Receive Date: 20101129
  Receipt Date: 20101112
  Transmission Date: 20110411
  Serious: Yes (Hospitalization)
  Sender: FDA-Public Use
  Company Number: GER/GER/09/0008804

PATIENT
  Age: 65 Year
  Sex: Female
  Weight: 64 kg

DRUGS (15)
  1. RAMIPRIL [Suspect]
     Indication: HYPERTENSION
     Dosage: 2.5 MG, 1 IN 1 D, ORAL
     Route: 048
     Dates: start: 20080901, end: 20081009
  2. SPIRONOLACTONE [Suspect]
     Indication: HYPERTENSION
     Dosage: 100 MG, 1 IN 1 D, ORAL
     Route: 048
     Dates: start: 20080901, end: 20081009
  3. XIPAMIDE (XIPAMIDE) [Suspect]
     Indication: HYPERTENSION
     Dosage: 10 MG, 1 IN 1 D, ORAL
     Route: 048
     Dates: start: 20080729, end: 20081008
  4. ZYVOXID (LINEZOLID) [Suspect]
     Indication: INTERVERTEBRAL DISCITIS
     Dosage: 600 MG, 2 IN 1 D, ORAL
     Route: 048
     Dates: start: 20080922, end: 20081009
  5. CORDAREX (AMIODARONE HYDROCHLORIDE) [Suspect]
     Indication: ATRIAL FIBRILLATION
     Dosage: 200 MG, 1 IN 1 D, ORAL
     Route: 048
     Dates: start: 20080901, end: 20081010
  6. TOREM (TORASEMIDE) [Suspect]
     Indication: HYPERTENSION
     Dosage: 10 MG, 2 IN 1 D, ORAL
     Route: 048
     Dates: start: 20080729
  7. NOVALGIN (NOVO-PETRIN) [Concomitant]
  8. ACETAMINOPHEN [Concomitant]
  9. OXYCODONE HCL [Concomitant]
  10. DIGITOXIN INJ [Concomitant]
  11. METOPROLOL SUCCINATE [Concomitant]
  12. OMEPRAZOLE [Concomitant]
  13. SIMVASTATIN [Concomitant]
  14. ENOXAPARIN SODIUM [Concomitant]
  15. AMITRIPTYLINE HYDROCHLORIDE [Concomitant]

REACTIONS (4)
  - NEPHROGENIC ANAEMIA [None]
  - RENAL FAILURE ACUTE [None]
  - SHOCK HAEMORRHAGIC [None]
  - TONGUE DRY [None]
